FAERS Safety Report 4559189-6 (Version None)
Quarter: 2005Q1

REPORT INFORMATION
  Report Type: 
  Country: None (occurrence: None)
  Receive Date: 20050124
  Receipt Date: 20050113
  Transmission Date: 20050727
  Serious: Yes (Hospitalization)
  Sender: FDA-Public Use
  Company Number: SEWYE337313JAN05

PATIENT
  Sex: Female

DRUGS (1)
  1. ENBREL [Suspect]
     Indication: RHEUMATOID ARTHRITIS
     Dosage: DOSAGE NOT SPECIFIED
     Route: 058
     Dates: start: 20030101, end: 20040201

REACTIONS (2)
  - IMPLANT SITE INFECTION [None]
  - JOINT ARTHROPLASTY [None]
